FAERS Safety Report 10288457 (Version 5)
Quarter: 2014Q3

REPORT INFORMATION
  Report Type: Spontaneous
  Country: US (occurrence: US)
  Receive Date: 20140709
  Receipt Date: 20140904
  Transmission Date: 20150326
  Serious: Yes (Hospitalization, Other)
  Sender: FDA-Public Use
  Company Number: US-PFIZER INC-2014190484

PATIENT
  Age: 50 Year
  Sex: Female
  Weight: 68.03 kg

DRUGS (3)
  1. CHANTIX [Suspect]
     Active Substance: VARENICLINE TARTRATE
     Dosage: UNK
     Route: 048
     Dates: start: 201405, end: 20140527
  2. CHANTIX [Suspect]
     Active Substance: VARENICLINE TARTRATE
     Indication: SMOKING CESSATION THERAPY
     Dosage: 0.5 MG AND 1 MG (STARTING MONTH PACK) ONCE DAILY
     Route: 048
     Dates: start: 20111027, end: 20130821
  3. CHANTIX [Suspect]
     Active Substance: VARENICLINE TARTRATE
     Dosage: 1 MG, 1X/DAY (CONTINUING MONTH PACK)
     Route: 048
     Dates: start: 20120119, end: 20130821

REACTIONS (5)
  - Coma [Unknown]
  - Myocardial ischaemia [Unknown]
  - Amnesia [Unknown]
  - Cerebrovascular accident [Unknown]
  - Road traffic accident [Unknown]

NARRATIVE: CASE EVENT DATE: 201405
